FAERS Safety Report 4743662-1 (Version None)
Quarter: 2005Q3

REPORT INFORMATION
  Report Type: 
  Country: None (occurrence: None)
  Receive Date: 20050812
  Receipt Date: 20050803
  Transmission Date: 20060218
  Serious: Yes (Hospitalization)
  Sender: FDA-Public Use
  Company Number: FR-SANOFI-SYNTHELABO-A02200502101

PATIENT
  Sex: Female

DRUGS (2)
  1. STILNOX [Suspect]
     Indication: SLEEP DISORDER
     Dosage: 5 MG IN CASE OF NEED
     Route: 048
     Dates: start: 20031222, end: 20050615
  2. FEMARA [Interacting]
     Indication: BREAST CANCER FEMALE
     Route: 048
     Dates: start: 20050310, end: 20050319

REACTIONS (5)
  - DISTURBANCE IN ATTENTION [None]
  - ROAD TRAFFIC ACCIDENT [None]
  - SOMNOLENCE [None]
  - UPPER LIMB FRACTURE [None]
  - VERTIGO [None]
